FAERS Safety Report 5638465-X (Version None)
Quarter: 2008Q1

REPORT INFORMATION
  Report Type: 
  Country: None (occurrence: None)
  Receive Date: 20080226
  Receipt Date: 20071109
  Transmission Date: 20080703
  Serious: Yes (Other)
  Sender: FDA-Public Use
  Company Number: A0060775A

PATIENT

DRUGS (2)
  1. IMITREX [Suspect]
  2. SEROTONIN RE-UPTAKE INHIBITOR [Suspect]
     Route: 065

REACTIONS (2)
  - DRUG INTERACTION [None]
  - SEROTONIN SYNDROME [None]
